FAERS Safety Report 9335267 (Version 5)
Quarter: 2013Q4

REPORT INFORMATION
  Report Type: Report from Study
  Country: CA (occurrence: CA)
  Receive Date: 20130606
  Receipt Date: 20131120
  Transmission Date: 20140711
  Serious: Yes (Life-Threatening, Other)
  Sender: FDA-Public Use
  Company Number: CA-ROCHE-1228939

PATIENT
  Age: 51 Year
  Sex: Male
  Weight: 127 kg

DRUGS (30)
  1. RITUXAN [Suspect]
     Indication: GRANULOMATOSIS WITH POLYANGIITIS
     Route: 042
     Dates: start: 20120323
  2. RITUXAN [Suspect]
     Route: 065
     Dates: start: 20120413
  3. METFORMIN [Suspect]
     Indication: PRODUCT USED FOR UNKNOWN INDICATION
     Route: 065
  4. CYCLOPHOSPHAMIDE [Suspect]
     Indication: PRODUCT USED FOR UNKNOWN INDICATION
     Route: 048
  5. CYCLOPHOSPHAMIDE [Suspect]
     Route: 042
  6. METHOTREXATE [Suspect]
     Indication: PRODUCT USED FOR UNKNOWN INDICATION
     Route: 065
  7. DIPHENHYDRAMINE HCL [Concomitant]
     Indication: PREMEDICATION
     Route: 048
     Dates: start: 20120330
  8. ACETAMINOPHEN [Concomitant]
     Route: 048
     Dates: start: 20120330
  9. METHYLPREDNISOLONE [Concomitant]
     Route: 042
     Dates: start: 20120330
  10. PREDNISONE [Concomitant]
     Route: 065
  11. PREDNISONE [Concomitant]
     Route: 065
  12. PREDNISONE [Concomitant]
     Dosage: DOSE INCREASED
     Route: 065
  13. PREDNISONE [Concomitant]
     Route: 065
  14. MYFORTIC [Concomitant]
     Route: 065
  15. FUROSEMIDE [Concomitant]
     Route: 065
  16. PANTOPRAZOLE [Concomitant]
     Route: 065
  17. FENTANYL PATCH [Concomitant]
     Route: 065
  18. CITALOPRAM [Concomitant]
     Route: 065
  19. TYLENOL #3 (CANADA) [Concomitant]
     Route: 065
  20. ONDANSETRON [Concomitant]
     Route: 065
  21. POTASSIUM CHLORIDE [Concomitant]
     Route: 065
  22. LORAZEPAM [Concomitant]
     Route: 065
  23. VITAMIN B12 [Concomitant]
     Route: 065
  24. DOXAZOSIN [Concomitant]
     Route: 065
  25. ASPIRIN [Concomitant]
     Route: 065
  26. CLOPIDOGREL [Concomitant]
     Route: 065
  27. ROSUVASTATIN [Concomitant]
     Route: 065
  28. TRAZODONE [Concomitant]
     Route: 065
  29. CPAP [Concomitant]
     Route: 065
  30. MYCOPHENOLATE MOFETIL [Concomitant]
     Indication: SKIN CANCER
     Route: 065

REACTIONS (14)
  - Arteriosclerosis [Unknown]
  - Malignant melanoma in situ [Unknown]
  - Diabetes mellitus [Unknown]
  - Interstitial lung disease [Recovered/Resolved]
  - Alveolitis [Unknown]
  - Granulomatosis with polyangiitis [Not Recovered/Not Resolved]
  - Nasopharyngitis [Recovered/Resolved]
  - Joint stiffness [Not Recovered/Not Resolved]
  - Weight increased [Not Recovered/Not Resolved]
  - Drug hypersensitivity [Not Recovered/Not Resolved]
  - Nausea [Not Recovered/Not Resolved]
  - Fatigue [Not Recovered/Not Resolved]
  - Arthralgia [Not Recovered/Not Resolved]
  - Rash [Unknown]
